FAERS Safety Report 25926413 (Version 1)
Quarter: 2025Q4

REPORT INFORMATION
  Report Type: Spontaneous
  Country: US (occurrence: None)
  Receive Date: 20251014
  Receipt Date: 20251014
  Transmission Date: 20260118
  Serious: No
  Sender: FDA-CTU
  Company Number: None

PATIENT

DRUGS (1)
  1. OCREVUS [Suspect]
     Active Substance: OCRELIZUMAB

REACTIONS (6)
  - Infusion related reaction [None]
  - Chest discomfort [None]
  - Chest discomfort [None]
  - Swelling face [None]
  - Feeling hot [None]
  - Swelling [None]

NARRATIVE: CASE EVENT DATE: 20251014
